FAERS Safety Report 13689539 (Version 1)
Quarter: 2017Q2

REPORT INFORMATION
  Report Type: Spontaneous
  Country: US (occurrence: US)
  Receive Date: 20170626
  Receipt Date: 20170626
  Transmission Date: 20170830
  Serious: Yes (Other)
  Sender: FDA-Public Use
  Company Number: US-BAYER-2017-117565

PATIENT
  Age: 58 Year
  Sex: Female

DRUGS (1)
  1. BAYER LOW DOSE [Suspect]
     Active Substance: ASPIRIN
     Dosage: UNK, QD

REACTIONS (5)
  - Haematemesis [None]
  - Mucosal ulceration [None]
  - Oesophageal ulcer [None]
  - Gastritis [None]
  - Necrotising oesophagitis [None]
